FAERS Safety Report 8245432 (Version 5)
Quarter: 2013Q4

REPORT INFORMATION
  Report Type: Report from Study
  Country: DE (occurrence: DE)
  Receive Date: 20111115
  Receipt Date: 20131224
  Transmission Date: 20140711
  Serious: Yes (Hospitalization, Other)
  Sender: FDA-Public Use
  Company Number: PHHY2011DE20632

PATIENT
  Age: 65 Year
  Sex: Female
  Weight: 87 kg

DRUGS (10)
  1. ICL670A [Suspect]
     Indication: MYELODYSPLASTIC SYNDROME
     Dosage: 1500 MG, QD
     Route: 048
     Dates: start: 20110202, end: 20110420
  2. PANTOZOL [Concomitant]
     Dosage: 40 MG, QD
     Route: 048
     Dates: start: 20110222
  3. PULMICORT [Concomitant]
     Route: 055
     Dates: start: 20050413
  4. DELIX [Concomitant]
     Dosage: 2.5 MG, 1/2 DAILY
  5. ANTRA [Concomitant]
     Dosage: 20 MG, BID
     Dates: start: 20110222
  6. SERETIDE DISKUS [Concomitant]
  7. KLIOGEST ^NOVO INDUSTRI^ [Concomitant]
  8. RAMIPRIL [Concomitant]
     Dosage: UNK UKN, UNK
     Dates: start: 20110920
  9. VALPROAT [Concomitant]
     Dosage: 1000 MG, UNK
     Dates: start: 20110921, end: 20111011
  10. VALPROAT [Concomitant]
     Dosage: 1300 MG, UNK
     Dates: start: 20111012, end: 20120313

REACTIONS (14)
  - Gastroenteritis [Recovered/Resolved]
  - Pyrexia [Recovered/Resolved]
  - Abdominal pain lower [Recovered/Resolved]
  - Diarrhoea [Recovered/Resolved]
  - Nausea [Recovered/Resolved]
  - Vomiting [Recovered/Resolved]
  - Bronchopneumonia [Recovered/Resolved]
  - Pleurisy [Recovered/Resolved]
  - Painful respiration [Recovered/Resolved]
  - Hallucination [Recovered/Resolved]
  - Blood creatinine increased [Recovered/Resolved]
  - Haemoglobin decreased [Recovered/Resolved]
  - Confusional state [Recovered/Resolved]
  - Crying [Recovered/Resolved]
